FAERS Safety Report 7911529-3 (Version None)
Quarter: 2011Q4

REPORT INFORMATION
  Report Type: 
  Country: None (occurrence: None)
  Receive Date: 20111114
  Receipt Date: 20111031
  Transmission Date: 20120403
  Serious: Yes (Other)
  Sender: FDA-Public Use
  Company Number: CA-ELI_LILLY_AND_COMPANY-CA201110008262

PATIENT
  Sex: Male

DRUGS (1)
  1. ZYPREXA [Suspect]
     Dosage: 5 MG, UNK

REACTIONS (5)
  - HYPERGLYCAEMIA [None]
  - IMPAIRED FASTING GLUCOSE [None]
  - RENAL FAILURE [None]
  - HAEMATURIA [None]
  - DIABETES MELLITUS [None]
